FAERS Safety Report 7949873-6 (Version None)
Quarter: 2011Q4

REPORT INFORMATION
  Report Type: 
  Country: None (occurrence: None)
  Receive Date: 20111130
  Receipt Date: 20111118
  Transmission Date: 20120403
  Serious: No
  Sender: FDA-Public Use
  Company Number: US-B.I. PHARMACEUTICALS,INC./RIDGEFIELD-2011-BP-22644BP

PATIENT
  Sex: Male
  Weight: 109.32 kg

DRUGS (9)
  1. SOTALOL HCL [Concomitant]
  2. FUROSEMIDE [Concomitant]
  3. LANOXIN [Concomitant]
  4. ZOLOFT [Concomitant]
  5. PRADAXA [Suspect]
     Indication: ATRIAL FIBRILLATION
     Dosage: 300 MG
     Route: 048
     Dates: start: 20101208, end: 20110105
  6. CAPOTEN [Concomitant]
  7. CARDIZEM [Concomitant]
  8. ASPIRIN [Concomitant]
  9. OMEPRAZOLE [Concomitant]

REACTIONS (1)
  - HEADACHE [None]
